FAERS Safety Report 18385610 (Version 2)
Quarter: 2020Q4

REPORT INFORMATION
  Report Type: Spontaneous
  Country: US (occurrence: US)
  Receive Date: 20201015
  Receipt Date: 20201023
  Transmission Date: 20210114
  Serious: No
  Sender: FDA-Public Use
  Company Number: US-AMGEN-USASP2020165831

PATIENT
  Age: 61 Year
  Sex: Female
  Weight: 72.8 kg

DRUGS (1)
  1. MVASI [Suspect]
     Active Substance: BEVACIZUMAB-AWWB
     Indication: UTERINE CANCER
     Dosage: 1100 MILLIGRAM, Q3WK
     Route: 042

REACTIONS (2)
  - Abdominal wall wound [Recovered/Resolved]
  - Off label use [Unknown]
